FAERS Safety Report 24757243 (Version 1)
Quarter: 2024Q4

REPORT INFORMATION
  Report Type: Spontaneous
  Country: US (occurrence: US)
  Receive Date: 20241220
  Receipt Date: 20241220
  Transmission Date: 20250115
  Serious: No
  Sender: ABBVIE
  Company Number: US-ABBVIE-6055427

PATIENT
  Age: 84 Year
  Sex: Male
  Weight: 75.3 kg

DRUGS (4)
  1. FOSCARBIDOPA\FOSLEVODOPA [Suspect]
     Active Substance: FOSCARBIDOPA\FOSLEVODOPA
     Indication: Parkinson^s disease
     Dosage: CONTINUOUS 24 HOUR INFUSION
     Route: 058
     Dates: start: 20241213
  2. GABAPENTIN [Concomitant]
     Active Substance: GABAPENTIN
     Indication: Pain
  3. MIDODRINE [Concomitant]
     Active Substance: MIDODRINE
     Indication: Blood pressure fluctuation
  4. FLUDROCORTISONE [Concomitant]
     Active Substance: FLUDROCORTISONE
     Indication: Blood pressure fluctuation

REACTIONS (4)
  - Blood pressure fluctuation [Not Recovered/Not Resolved]
  - Pallor [Not Recovered/Not Resolved]
  - Device information output issue [Not Recovered/Not Resolved]
  - Asthenia [Not Recovered/Not Resolved]

NARRATIVE: CASE EVENT DATE: 20241214
